FAERS Safety Report 13119793 (Version 1)
Quarter: 2017Q1

REPORT INFORMATION
  Report Type: Report from Study
  Country: FR (occurrence: FR)
  Receive Date: 20170117
  Receipt Date: 20170117
  Transmission Date: 20170428
  Serious: Yes (Hospitalization)
  Sender: FDA-Public Use
  Company Number: FR-ROCHE-1878072

PATIENT
  Age: 48 Year
  Sex: Female
  Weight: 91 kg

DRUGS (27)
  1. TOCILIZUMAB [Suspect]
     Active Substance: TOCILIZUMAB
     Indication: RHEUMATOID ARTHRITIS
     Dosage: LAST INFUSION ON 07/MAY/2014
     Route: 041
     Dates: start: 20120627, end: 20140507
  2. TOCILIZUMAB [Suspect]
     Active Substance: TOCILIZUMAB
     Route: 041
     Dates: start: 20121214
  3. TOCILIZUMAB [Suspect]
     Active Substance: TOCILIZUMAB
     Route: 041
     Dates: start: 20130415
  4. TOCILIZUMAB [Suspect]
     Active Substance: TOCILIZUMAB
     Route: 041
     Dates: start: 20131011
  5. TOCILIZUMAB [Suspect]
     Active Substance: TOCILIZUMAB
     Route: 041
     Dates: start: 20131108
  6. TOCILIZUMAB [Suspect]
     Active Substance: TOCILIZUMAB
     Route: 041
     Dates: start: 20131206
  7. AMAREL [Concomitant]
     Active Substance: GLIMEPIRIDE
     Dosage: AT 2 DOSES PER DAY
     Route: 065
  8. LEVOTHYROX [Concomitant]
     Active Substance: LEVOTHYROXINE
     Route: 065
  9. TAHOR [Concomitant]
     Active Substance: ATORVASTATIN CALCIUM
  10. TOPALGIC (FRANCE) [Concomitant]
     Active Substance: TRAMADOL
     Route: 065
  11. INEXIUM [Concomitant]
     Active Substance: ESOMEPRAZOLE
     Route: 065
  12. LYSANXIA [Concomitant]
     Active Substance: PRAZEPAM
  13. LERCAN [Concomitant]
     Active Substance: LERCANIDIPINE
  14. TOCILIZUMAB [Suspect]
     Active Substance: TOCILIZUMAB
     Route: 041
     Dates: start: 20130313
  15. TOCILIZUMAB [Suspect]
     Active Substance: TOCILIZUMAB
     Route: 041
     Dates: start: 20140507
  16. TOCILIZUMAB [Suspect]
     Active Substance: TOCILIZUMAB
     Route: 041
     Dates: start: 20140409
  17. LEVOTHYROX [Concomitant]
     Active Substance: LEVOTHYROXINE
     Route: 065
  18. COVERSYL [Concomitant]
     Active Substance: PERINDOPRIL
     Route: 065
  19. DOLIPRANE [Concomitant]
     Active Substance: ACETAMINOPHEN
     Route: 065
  20. TOCILIZUMAB [Suspect]
     Active Substance: TOCILIZUMAB
     Route: 041
     Dates: start: 20140312
  21. COVERSYL [Concomitant]
     Active Substance: PERINDOPRIL
     Route: 065
  22. LEVEMIR [Concomitant]
     Active Substance: INSULIN DETEMIR
     Dosage: 36 UNITS PER DAY
     Route: 065
  23. TOCILIZUMAB [Suspect]
     Active Substance: TOCILIZUMAB
     Route: 041
     Dates: start: 20130913
  24. CRESTOR [Concomitant]
     Active Substance: ROSUVASTATIN CALCIUM
     Route: 065
  25. TOCILIZUMAB [Suspect]
     Active Substance: TOCILIZUMAB
     Dosage: 8 MG/KG
     Route: 041
     Dates: start: 20120824
  26. NOVOMIX [Concomitant]
     Active Substance: INSULIN ASPART
  27. TEMESTA (FRANCE) [Concomitant]
     Active Substance: LORAZEPAM

REACTIONS (7)
  - Diabetes mellitus [Recovered/Resolved]
  - Abdominal pain [Recovered/Resolved]
  - Diabetes mellitus inadequate control [Recovered/Resolved]
  - Hepatocellular injury [Not Recovered/Not Resolved]
  - Cholestasis [Recovered/Resolved]
  - Corneal abscess [Recovered/Resolved]
  - Gastroenteritis [Recovered/Resolved]

NARRATIVE: CASE EVENT DATE: 201209
